FAERS Safety Report 9539849 (Version 16)
Quarter: 2017Q2

REPORT INFORMATION
  Report Type: Report from Study
  Country: CA (occurrence: CA)
  Receive Date: 20130920
  Receipt Date: 20170608
  Transmission Date: 20170830
  Serious: Yes (Other)
  Sender: FDA-Public Use
  Company Number: PHHY2013CA104168

PATIENT
  Age: 46 Year
  Sex: Female

DRUGS (8)
  1. TASIGNA [Suspect]
     Active Substance: NILOTINIB
     Dosage: 300 MG BID ONE DAY AND 150 MG BID THE NEXT DAY
     Route: 048
  2. TASIGNA [Suspect]
     Active Substance: NILOTINIB
     Indication: CHRONIC MYELOID LEUKAEMIA
     Dosage: 300 MG, BID
     Route: 048
     Dates: start: 20130208
  3. FENTANYL. [Concomitant]
     Active Substance: FENTANYL
     Indication: ARTHRALGIA
     Route: 065
  4. DEPO-PROVERA [Concomitant]
     Active Substance: MEDROXYPROGESTERONE ACETATE
     Indication: PRODUCT USED FOR UNKNOWN INDICATION
     Route: 065
  5. TASIGNA [Suspect]
     Active Substance: NILOTINIB
     Dosage: 300 MG, BID
     Route: 048
  6. MS CONTIN [Concomitant]
     Active Substance: MORPHINE SULFATE
     Indication: PAIN
     Route: 065
  7. LASIX [Suspect]
     Active Substance: FUROSEMIDE
     Indication: PRODUCT USED FOR UNKNOWN INDICATION
     Route: 065
  8. WELLBUTRIN [Suspect]
     Active Substance: BUPROPION HYDROCHLORIDE
     Indication: PRODUCT USED FOR UNKNOWN INDICATION
     Route: 065

REACTIONS (51)
  - Blister [Not Recovered/Not Resolved]
  - Wound haemorrhage [Unknown]
  - Skin sensitisation [Unknown]
  - Movement disorder [Unknown]
  - Pain [Unknown]
  - Hyperhidrosis [Not Recovered/Not Resolved]
  - Decreased appetite [Unknown]
  - Diabetes mellitus [Unknown]
  - Lung disorder [Unknown]
  - Loss of consciousness [Unknown]
  - Visual impairment [Unknown]
  - Vomiting [Unknown]
  - Pollakiuria [Unknown]
  - Pruritus [Unknown]
  - Blood pressure fluctuation [Unknown]
  - Palpitations [Not Recovered/Not Resolved]
  - Weight increased [Unknown]
  - Dizziness [Unknown]
  - Abdominal distension [Unknown]
  - Tunnel vision [Unknown]
  - Mouth swelling [Unknown]
  - Blood test abnormal [Unknown]
  - Headache [Unknown]
  - Skin atrophy [Not Recovered/Not Resolved]
  - Asthenia [Unknown]
  - Fatigue [Unknown]
  - Arthralgia [Unknown]
  - Hunger [Unknown]
  - Oral mucosal blistering [Recovering/Resolving]
  - Balance disorder [Unknown]
  - Parosmia [Unknown]
  - Depressed level of consciousness [Unknown]
  - Arrhythmia [Unknown]
  - Generalised oedema [Not Recovered/Not Resolved]
  - Laceration [Not Recovered/Not Resolved]
  - Vaginal odour [Unknown]
  - Lactose intolerance [Unknown]
  - Migraine [Unknown]
  - Fluid retention [Unknown]
  - Lethargy [Unknown]
  - Somnolence [Unknown]
  - Dyspnoea [Not Recovered/Not Resolved]
  - Dry skin [Not Recovered/Not Resolved]
  - Photophobia [Unknown]
  - Abdominal pain [Unknown]
  - Wound [Unknown]
  - Nasal oedema [Unknown]
  - Hypoaesthesia [Unknown]
  - Skin irritation [Unknown]
  - Gastrooesophageal reflux disease [Unknown]
  - Nausea [Unknown]

NARRATIVE: CASE EVENT DATE: 20161114
